FAERS Safety Report 11515993 (Version 1)
Quarter: 2015Q3

REPORT INFORMATION
  Report Type: Spontaneous
  Country: GB (occurrence: GB)
  Receive Date: 20150917
  Receipt Date: 20150917
  Transmission Date: 20151125
  Serious: Yes (Hospitalization)
  Sender: FDA-Public Use
  Company Number: GB-009507513-1509GBR005383

PATIENT
  Age: 66 Year
  Sex: Female

DRUGS (6)
  1. ACETAMINOPHEN. [Concomitant]
     Active Substance: ACETAMINOPHEN
     Dosage: 500 MG, PRN
  2. QUETIAPINE FUMARATE. [Concomitant]
     Active Substance: QUETIAPINE FUMARATE
     Dosage: 100 MG, UNK
     Route: 048
     Dates: start: 201506
  3. FLUPENTIXOL [Concomitant]
     Active Substance: FLUPENTIXOL
     Dosage: DEPOT
  4. PROCYCLIDINE HYDROCHLORIDE [Concomitant]
     Active Substance: PROCYCLIDINE HYDROCHLORIDE
     Dosage: 5 MG, TID
     Route: 048
  5. QUETIAPINE FUMARATE. [Concomitant]
     Active Substance: QUETIAPINE FUMARATE
     Dosage: 200 MG, QD, FOR MANY YEARS
     Dates: end: 201506
  6. SIMVASTATIN. [Suspect]
     Active Substance: SIMVASTATIN
     Indication: BLOOD CHOLESTEROL
     Dosage: 40 MG, QD EVERY NIGHT
     Route: 048
     Dates: end: 20150827

REACTIONS (3)
  - Rhabdomyolysis [Recovering/Resolving]
  - Fall [Unknown]
  - Blood creatine phosphokinase increased [Not Recovered/Not Resolved]
